FAERS Safety Report 25217155 (Version 1)
Quarter: 2025Q2

REPORT INFORMATION
  Report Type: Spontaneous
  Country: ES (occurrence: ES)
  Receive Date: 20250419
  Receipt Date: 20250419
  Transmission Date: 20250717
  Serious: Yes (Hospitalization)
  Sender: TEVA
  Company Number: None

PATIENT
  Age: 77 Year
  Sex: Female

DRUGS (6)
  1. ALPRAZOLAM [Interacting]
     Active Substance: ALPRAZOLAM
     Indication: Anxiety
     Dosage: 1-0-1, ALPRAZOLAM (99A)
     Route: 048
     Dates: start: 20180226
  2. PALEXIA [Interacting]
     Active Substance: TAPENTADOL HYDROCHLORIDE
     Indication: Pain
     Dosage: 1-0-1, 60 TABLETS
     Route: 048
     Dates: start: 20250317, end: 20250328
  3. PALEXIA [Interacting]
     Active Substance: TAPENTADOL HYDROCHLORIDE
     Indication: Pain
     Dosage: 1-0-1, 60 TABLETS
     Route: 048
     Dates: start: 20210902, end: 20250328
  4. PALEXIA [Interacting]
     Active Substance: TAPENTADOL HYDROCHLORIDE
     Indication: Pain
     Dosage: 1-0-1, 60 TABLETS
     Route: 048
     Dates: start: 20180410, end: 20250328
  5. LORMETAZEPAM [Interacting]
     Active Substance: LORMETAZEPAM
     Indication: Anxiety
     Dosage: 0-0-1, LORMETAZEPAM (88A)
     Route: 048
     Dates: start: 20231222, end: 20250328
  6. PREGABALIN [Interacting]
     Active Substance: PREGABALIN
     Indication: Pain
     Dosage: 0-0-1, HARD CAPSULES EFG, 56 CAPSULES (ALUMINUM BLISTER/PVC-PVDC 60)
     Route: 048
     Dates: start: 20241030

REACTIONS (1)
  - Confusional state [Recovered/Resolved]

NARRATIVE: CASE EVENT DATE: 20250320
